FAERS Safety Report 6683308-9 (Version None)
Quarter: 2010Q2

REPORT INFORMATION
  Report Type: 
  Country: None (occurrence: None)
  Receive Date: 20100415
  Receipt Date: 20100412
  Transmission Date: 20101027
  Serious: Yes (Hospitalization)
  Sender: FDA-Public Use
  Company Number: GXKR2009DE08048

PATIENT
  Age: 87 Year
  Sex: Female

DRUGS (11)
  1. ACETYLSALICYLIC ACID SRT [Suspect]
     Indication: CORONARY ARTERY DISEASE
     Dosage: 100 MG, QD
     Dates: end: 20090521
  2. DOXYCYCLINE (NGX) [Suspect]
     Indication: URINARY TRACT INFECTION
     Dosage: 100 MG, QD
     Dates: start: 20090515, end: 20090524
  3. ACTRAPHANE HM [Concomitant]
  4. FERRO SANOL COMP [Concomitant]
  5. METOPROLOL TARTRATE [Concomitant]
  6. NOVALGIN                                /SCH/ [Concomitant]
  7. RAMIPRIL [Concomitant]
  8. RIFUN [Concomitant]
  9. TORSEMIDE [Concomitant]
  10. XIPAMIDE [Concomitant]
  11. ZOPICLONE [Concomitant]

REACTIONS (2)
  - DIARRHOEA [None]
  - ULCER HAEMORRHAGE [None]
